FAERS Safety Report 12742837 (Version 1)
Quarter: 2016Q3

REPORT INFORMATION
  Report Type: Spontaneous
  Country: US (occurrence: US)
  Receive Date: 20160914
  Receipt Date: 20160914
  Transmission Date: 20161109
  Serious: No
  Sender: FDA-Public Use
  Company Number: None

PATIENT
  Age: 21 Year
  Sex: Female
  Weight: 45 kg

DRUGS (2)
  1. MAGNESIUM [Concomitant]
     Active Substance: MAGNESIUM
  2. ARMODAFINIL. [Suspect]
     Active Substance: ARMODAFINIL
     Indication: NARCOLEPSY
     Route: 048
     Dates: start: 20160718, end: 20160913

REACTIONS (8)
  - Anxiety [None]
  - Depressed level of consciousness [None]
  - Insomnia [None]
  - Rash [None]
  - Product substitution issue [None]
  - Nausea [None]
  - Headache [None]
  - Condition aggravated [None]

NARRATIVE: CASE EVENT DATE: 20160720
